FAERS Safety Report 17630611 (Version 1)
Quarter: 2020Q2

REPORT INFORMATION
  Report Type: Spontaneous
  Country: US (occurrence: US)
  Receive Date: 20200403
  Receipt Date: 20200403
  Transmission Date: 20200713
  Serious: Yes (Hospitalization)
  Sender: FDA-Public Use
  Company Number: None

PATIENT
  Age: 86 Year
  Sex: Female
  Weight: 63.5 kg

DRUGS (10)
  1. PEPCID [Concomitant]
     Active Substance: FAMOTIDINE
  2. NORVASC [Concomitant]
     Active Substance: AMLODIPINE BESYLATE
  3. CHOLESTOFF TABLET [Concomitant]
  4. VIT D 2000 DAILY [Concomitant]
  5. ALLOPURINOL. [Concomitant]
     Active Substance: ALLOPURINOL
  6. OCUVITE [Concomitant]
     Active Substance: VITAMINS
  7. PROLIA [Suspect]
     Active Substance: DENOSUMAB
     Indication: OSTEOPOROSIS
     Dosage: ?          QUANTITY:60 MG MILLIGRAM(S);OTHER FREQUENCY:INJECTION 1 TIME;OTHER ROUTE:INJECTION?
     Dates: start: 20191129, end: 20191129
  8. TOPROL XL [Concomitant]
     Active Substance: METOPROLOL SUCCINATE
  9. BABY ASPRIN 81MG [Concomitant]
  10. CALCIUM [Concomitant]
     Active Substance: CALCIUM

REACTIONS (15)
  - Abdominal pain [None]
  - Adverse drug reaction [None]
  - Pruritus [None]
  - Vision blurred [None]
  - Asthenia [None]
  - Chills [None]
  - Flatulence [None]
  - Rash [None]
  - Dyspnoea [None]
  - Dry skin [None]
  - Rhinorrhoea [None]
  - Diarrhoea [None]
  - Blister [None]
  - Back pain [None]
  - Arthralgia [None]

NARRATIVE: CASE EVENT DATE: 20191130
